FAERS Safety Report 8862435 (Version 2)
Quarter: 2013Q1

REPORT INFORMATION
  Report Type: Report from Study
  Country: JP (occurrence: JP)
  Receive Date: 20121026
  Receipt Date: 20130308
  Transmission Date: 20140127
  Serious: Yes (Hospitalization)
  Sender: FDA-Public Use
  Company Number: JP-NOVOPROD-362221

PATIENT
  Age: 44 Year
  Sex: Male
  Weight: 72.6 kg

DRUGS (3)
  1. LIRAGLUTIDE FLEXPEN [Suspect]
     Indication: TYPE 2 DIABETES MELLITUS
     Dosage: 0.9 MG, QD
     Route: 058
     Dates: start: 20120630
  2. METGLUCO [Concomitant]
     Indication: TYPE 2 DIABETES MELLITUS
     Dosage: 1500 MG, QD
     Route: 048
     Dates: start: 20111124
  3. CRESTOR [Concomitant]
     Indication: HYPERLIPIDAEMIA
     Dosage: 2.5 MG, QD
     Route: 048
     Dates: start: 20101122

REACTIONS (1)
  - Cardiac failure [Recovered/Resolved]
